FAERS Safety Report 6620434-4 (Version None)
Quarter: 2010Q1

REPORT INFORMATION
  Report Type: 
  Country: None (occurrence: None)
  Receive Date: 20100309
  Receipt Date: 20100224
  Transmission Date: 20100710
  Serious: Yes (Other)
  Sender: FDA-Public Use
  Company Number: JP-PFIZER INC-2010024081

PATIENT
  Age: 70 Year
  Sex: Female

DRUGS (5)
  1. LIPITOR [Suspect]
     Indication: HYPERCHOLESTEROLAEMIA
     Dosage: 5 MG, UID/QD
     Route: 048
     Dates: start: 20091201
  2. DILTIAZEM HYDROCHLORIDE [Concomitant]
     Dosage: UNK
     Route: 048
  3. SIGMART [Concomitant]
     Dosage: UNK
     Route: 048
  4. MAGNESIUM OXIDE [Concomitant]
     Dosage: UNK
     Route: 048
  5. DEPAS [Concomitant]
     Route: 048

REACTIONS (3)
  - HOT FLUSH [None]
  - MYALGIA [None]
  - VISION BLURRED [None]
